FAERS Safety Report 10920333 (Version 1)
Quarter: 2015Q1

REPORT INFORMATION
  Report Type: Spontaneous
  Country: US (occurrence: US)
  Receive Date: 20150317
  Receipt Date: 20150317
  Transmission Date: 20150721
  Serious: No
  Sender: FDA-Public Use
  Company Number: US-BIOGENIDEC-2015BI008990

PATIENT
  Age: 69 Year
  Sex: Female

DRUGS (17)
  1. BACLOFEN. [Concomitant]
     Active Substance: BACLOFEN
  2. NORCO [Concomitant]
     Active Substance: ACETAMINOPHEN\HYDROCODONE BITARTRATE
  3. VITAMIN A [Concomitant]
     Active Substance: VITAMIN A
  4. METROPOLOL [Concomitant]
     Active Substance: METOPROLOL
  5. VALPROIC ACID. [Concomitant]
     Active Substance: VALPROIC ACID
  6. ATIVAN [Concomitant]
     Active Substance: LORAZEPAM
  7. DILANTIN [Concomitant]
     Active Substance: PHENYTOIN
  8. VITAMIN D [Concomitant]
     Active Substance: CHOLECALCIFEROL
  9. CALCIUM 600 [Concomitant]
  10. NORTRIPTYLINE [Concomitant]
     Active Substance: NORTRIPTYLINE
  11. GABAPENTIN. [Concomitant]
     Active Substance: GABAPENTIN
  12. TECFIDERA [Suspect]
     Active Substance: DIMETHYL FUMARATE
     Indication: MULTIPLE SCLEROSIS
     Route: 048
     Dates: start: 20130715
  13. ASPIRIN. [Concomitant]
     Active Substance: ASPIRIN
  14. FERROUS SULFATE [Concomitant]
     Active Substance: FERROUS SULFATE\FERROUS SULFATE, DRIED
  15. SPIROLACTONE [Concomitant]
     Active Substance: SPIRONOLACTONE
  16. NIACIN CR [Concomitant]
  17. POTASSIUM [Concomitant]
     Active Substance: POTASSIUM

REACTIONS (3)
  - Intentional underdose [Unknown]
  - Platelet count decreased [Unknown]
  - White blood cell count decreased [Unknown]

NARRATIVE: CASE EVENT DATE: 20141202
